FAERS Safety Report 5969886-3 (Version None)
Quarter: 2008Q4

REPORT INFORMATION
  Report Type: 
  Country: None (occurrence: None)
  Receive Date: 20081126
  Receipt Date: 20081120
  Transmission Date: 20090506
  Serious: Yes (Other)
  Sender: FDA-Public Use
  Company Number: JP-PFIZER INC-2008095624

PATIENT
  Age: 28 Year
  Sex: Female

DRUGS (3)
  1. HYDROCORTISONE SODIUM SUCCINATE [Suspect]
     Indication: ASTHMA
     Dosage: DAILY DOSE:200MG
     Route: 042
     Dates: start: 20070901, end: 20070901
  2. BECLOMETHASONE DIPROPIONATE [Suspect]
     Indication: ASTHMA
     Dosage: DAILY DOSE:200MCG
     Route: 055
     Dates: start: 20070901
  3. PREDNISOLONE [Concomitant]
     Indication: ASTHMA
     Dosage: DAILY DOSE:20MG
     Route: 048
     Dates: start: 20070901

REACTIONS (1)
  - BRONCHOPULMONARY ASPERGILLOSIS ALLERGIC [None]
